FAERS Safety Report 7542863-7 (Version None)
Quarter: 2011Q2

REPORT INFORMATION
  Report Type: 
  Country: None (occurrence: None)
  Receive Date: 20110613
  Receipt Date: 20110603
  Transmission Date: 20111010
  Serious: Yes (Hospitalization, Other)
  Sender: FDA-Public Use
  Company Number: US-PFIZER INC-2011117565

PATIENT
  Age: 75 Year
  Sex: Female

DRUGS (4)
  1. METFORMIN HCL [Suspect]
     Dosage: 1000 MG, UNK
  2. NATEGLINIDE [Suspect]
     Dosage: 60 MG, UNK
  3. GLIPIZIDE [Suspect]
     Dosage: 5 MG, UNK
  4. SULFAMETHOXAZOLE AND TRIMETHOPRIM [Suspect]

REACTIONS (4)
  - DECREASED APPETITE [None]
  - HYPOGLYCAEMIA [None]
  - OSTEOMYELITIS [None]
  - CONVULSION [None]
